FAERS Safety Report 19397315 (Version 1)
Quarter: 2021Q2

REPORT INFORMATION
  Report Type: Spontaneous
  Country: DE (occurrence: DE)
  Receive Date: 20210610
  Receipt Date: 20210610
  Transmission Date: 20210717
  Serious: Yes (Life-Threatening)
  Sender: FDA-Public Use
  Company Number: DE-TORRENT-00020433

PATIENT
  Age: 71 Year
  Sex: Female

DRUGS (6)
  1. SIMVASTATIN. [Concomitant]
     Active Substance: SIMVASTATIN
     Indication: PRODUCT USED FOR UNKNOWN INDICATION
     Dosage: UNKNOWN
  2. CANDESARTAN. [Concomitant]
     Active Substance: CANDESARTAN
     Indication: PRODUCT USED FOR UNKNOWN INDICATION
     Dosage: UNKNOWN
  3. L?THYROXIN [Concomitant]
     Active Substance: LEVOTHYROXINE SODIUM
     Indication: PRODUCT USED FOR UNKNOWN INDICATION
     Dosage: UNKNOWN
  4. MARCUMAR [Suspect]
     Active Substance: PHENPROCOUMON
     Indication: MITRAL VALVE REPLACEMENT
     Dosage: UNKNOWN
     Route: 048
  5. NEBIVOLOL. [Concomitant]
     Active Substance: NEBIVOLOL
     Indication: PRODUCT USED FOR UNKNOWN INDICATION
     Dosage: UNKNOWN
  6. CLOPIDOGREL [Suspect]
     Active Substance: CLOPIDOGREL BISULFATE
     Indication: MITRAL VALVE REPLACEMENT
     Route: 048

REACTIONS (5)
  - Intraventricular haemorrhage [Unknown]
  - Hemiparesis [Unknown]
  - Cerebral haemorrhage [Unknown]
  - Coma [Unknown]
  - Aphasia [Unknown]

NARRATIVE: CASE EVENT DATE: 20210128
